FAERS Safety Report 8579520-4 (Version None)
Quarter: 2012Q3

REPORT INFORMATION
  Report Type: 
  Country: None (occurrence: None)
  Receive Date: 20120808
  Receipt Date: 20120731
  Transmission Date: 20120928
  Serious: Yes (Other)
  Sender: FDA-Public Use
  Company Number: US-ABBOTT-12P-163-0946476-00

PATIENT
  Sex: Female
  Weight: 86.26 kg

DRUGS (16)
  1. XANAX [Concomitant]
     Indication: ANXIETY DISORDER
     Dosage: 0.5MG, UP TO 4 TIMES PER DAY, AS NEEDED
  2. KLOR-CON [Concomitant]
     Indication: MINERAL SUPPLEMENTATION
     Dosage: 20MEQ DAILY
  3. FLEXERIL [Concomitant]
     Indication: FIBROMYALGIA
     Dosage: 3 AT BEDTIME
  4. HUMIRA [Suspect]
     Dates: start: 20120626
  5. HUMIRA [Suspect]
     Indication: PSORIASIS
     Dosage: LOADING DOSE ON 05 JUN 2012
     Dates: start: 20120605, end: 20120605
  6. OXYCONTIN [Concomitant]
     Indication: FIBROMYALGIA
  7. IBUPROFEN [Concomitant]
     Indication: PRODUCT USED FOR UNKNOWN INDICATION
  8. PRILOSEC [Concomitant]
     Indication: GASTROOESOPHAGEAL REFLUX DISEASE
     Dosage: DAILY
  9. NAPROXEN [Concomitant]
     Indication: FIBROMYALGIA
  10. TYLENOL [Concomitant]
     Indication: PRODUCT USED FOR UNKNOWN INDICATION
  11. LASIX [Concomitant]
     Indication: OEDEMA PERIPHERAL
  12. SEROQUEL XR [Concomitant]
     Indication: DEPRESSION
     Dosage: AT BEDTIME
  13. OXYCODONE HCL [Concomitant]
     Indication: FIBROMYALGIA
     Dosage: 1-3 TABS PER DAY, AS NEEDED
  14. PRISTIQ [Concomitant]
     Indication: DEPRESSION
     Dosage: DAILY
  15. BENADRYL [Concomitant]
     Indication: PRODUCT USED FOR UNKNOWN INDICATION
  16. PHENERGAN HCL [Concomitant]
     Indication: PRODUCT USED FOR UNKNOWN INDICATION
     Dosage: 25 MG PRN

REACTIONS (11)
  - CELLULITIS [None]
  - NAUSEA [None]
  - MUSCLE SPASMS [None]
  - PAIN IN EXTREMITY [None]
  - PSORIASIS [None]
  - FATIGUE [None]
  - PRURITUS [None]
  - PAIN [None]
  - PLATELET COUNT DECREASED [None]
  - THROMBOSIS [None]
  - FLUID RETENTION [None]
